FAERS Safety Report 6912186-5 (Version None)
Quarter: 2010Q3

REPORT INFORMATION
  Report Type: 
  Country: None (occurrence: None)
  Receive Date: 20100806
  Receipt Date: 20080209
  Transmission Date: 20110219
  Serious: Yes (Other)
  Sender: FDA-Public Use
  Company Number: US-PFIZER INC-2008012999

PATIENT
  Sex: Male
  Weight: 81.818 kg

DRUGS (3)
  1. DILANTIN [Suspect]
     Indication: CONVULSION
  2. PHENYTOIN [Suspect]
     Indication: CONVULSION
  3. ALL OTHER THERAPEUTIC PRODUCTS [Suspect]
     Indication: CONVULSION

REACTIONS (2)
  - CONVULSION [None]
  - GAIT DISTURBANCE [None]
